FAERS Safety Report 8321947-X (Version None)
Quarter: 2012Q2

REPORT INFORMATION
  Report Type: 
  Country: None (occurrence: None)
  Receive Date: 20120426
  Receipt Date: 20120413
  Transmission Date: 20120825
  Serious: Yes (Death)
  Sender: FDA-Public Use
  Company Number: 1258361

PATIENT
  Age: 72 Year
  Sex: Female

DRUGS (1)
  1. METHOTREXATE [Suspect]
     Indication: PSORIATIC ARTHROPATHY

REACTIONS (5)
  - RETROPERITONEAL HAEMORRHAGE [None]
  - RENAL FAILURE [None]
  - DIALYSIS [None]
  - HEPATOSPLENIC T-CELL LYMPHOMA [None]
  - GENERAL PHYSICAL HEALTH DETERIORATION [None]
